FAERS Safety Report 19973423 (Version 1)
Quarter: 2021Q4

REPORT INFORMATION
  Report Type: Spontaneous
  Country: US (occurrence: US)
  Receive Date: 20211020
  Receipt Date: 20211020
  Transmission Date: 20220303
  Serious: Yes (Disabling, Other)
  Sender: FDA-Public Use
  Company Number: None

PATIENT
  Age: 35 Year
  Sex: Female
  Weight: 58.5 kg

DRUGS (2)
  1. CIPRO [Suspect]
     Active Substance: CIPROFLOXACIN HYDROCHLORIDE
     Indication: Salmonellosis
     Dates: start: 20210915, end: 20210916
  2. CANNABIDIOL [Concomitant]
     Active Substance: CANNABIDIOL

REACTIONS (3)
  - Tendonitis [None]
  - Fall [None]
  - Muscular weakness [None]

NARRATIVE: CASE EVENT DATE: 20210915
